FAERS Safety Report 8614167-2 (Version None)
Quarter: 2012Q3

REPORT INFORMATION
  Report Type: 
  Country: None (occurrence: None)
  Receive Date: 20120823
  Receipt Date: 20120813
  Transmission Date: 20120928
  Serious: Yes (Other)
  Sender: FDA-Public Use
  Company Number: US-009507513-1208USA006244

PATIENT

DRUGS (1)
  1. PEG-INTRON [Suspect]
     Indication: HEPATITIS C
     Dosage: 150 MICROGRAM, QW
     Route: 058
     Dates: start: 20111126

REACTIONS (6)
  - VISION BLURRED [None]
  - TREMOR [None]
  - RASH [None]
  - DEPRESSION [None]
  - ALOPECIA [None]
  - FATIGUE [None]
